FAERS Safety Report 11912522 (Version 1)
Quarter: 2016Q1

REPORT INFORMATION
  Report Type: Spontaneous
  Country: US (occurrence: US)
  Receive Date: 20160113
  Receipt Date: 20160113
  Transmission Date: 20160526
  Serious: No
  Sender: FDA-Public Use
  Company Number: US-ASTRAZENECA-2016SE01108

PATIENT
  Sex: Male
  Weight: 80.7 kg

DRUGS (6)
  1. SYMBICORT [Suspect]
     Active Substance: BUDESONIDE\FORMOTEROL FUMARATE DIHYDRATE
     Indication: CHRONIC OBSTRUCTIVE PULMONARY DISEASE
     Dosage: 160/4.5 MCG, 2 PUFFS, TWO TIMES A DAY
     Route: 055
     Dates: start: 2006
  2. LEVOTHYROXINE. [Concomitant]
     Active Substance: LEVOTHYROXINE
     Dates: start: 2010
  3. FISH OIL [Concomitant]
     Active Substance: FISH OIL
  4. VITAMINS NOS [Concomitant]
     Active Substance: VITAMINS
  5. NIACIN. [Concomitant]
     Active Substance: NIACIN
  6. LEVAQUIN [Concomitant]
     Active Substance: LEVOFLOXACIN
     Indication: MALAISE
     Route: 048
     Dates: start: 20151230

REACTIONS (5)
  - Dyspnoea [Unknown]
  - Speech disorder [Unknown]
  - Dysphonia [Unknown]
  - Drug ineffective [Unknown]
  - Malaise [Unknown]
